FAERS Safety Report 6151661-0 (Version None)
Quarter: 2009Q2

REPORT INFORMATION
  Report Type: 
  Country: None (occurrence: None)
  Receive Date: 20090410
  Receipt Date: 20090410
  Transmission Date: 20091009
  Serious: Yes (Other)
  Sender: FDA-Public Use
  Company Number: US-PFIZER INC-2008091236

PATIENT
  Sex: Female
  Weight: 69.09 kg

DRUGS (2)
  1. CHANTIX [Suspect]
     Route: 048
     Dates: start: 20070101
  2. LAMICTAL [Concomitant]
     Indication: MOOD SWINGS

REACTIONS (2)
  - ABNORMAL DREAMS [None]
  - MANIA [None]
